FAERS Safety Report 8866961 (Version 1)
Quarter: 2012Q4

REPORT INFORMATION
  Report Type: 
  Country: US (occurrence: US)
  Receive Date: 20121025
  Receipt Date: 20121025
  Transmission Date: 20130627
  Serious: No
  Sender: FDA-Public Use
  Company Number: US-AMGEN-USASP2012014001

PATIENT
  Age: 73 Year
  Sex: Female
  Weight: 63.49 kg

DRUGS (16)
  1. ENBREL [Suspect]
     Indication: PRODUCT USED FOR UNKNOWN INDICATION
     Dosage: 50 mg, qwk
     Route: 058
  2. BONIVA [Concomitant]
     Dosage: 2.5 mg, UNK
  3. BENADRYL ALLERGY                   /00000402/ [Concomitant]
     Dosage: 25 mg, UNK
  4. OMEPRAZOLE [Concomitant]
     Dosage: 10 mg, UNK
  5. SIMVASTATIN [Concomitant]
     Dosage: 40 mg, UNK
  6. FOLIC ACID [Concomitant]
     Dosage: 1 mg, UNK
  7. VITAMIN D /00107901/ [Concomitant]
     Dosage: 50000 IU, UNK
  8. BYSTOLIC [Concomitant]
     Dosage: 5 mg, UNK
  9. VITAMIN C                          /00008001/ [Concomitant]
     Dosage: 500 mg, UNK
  10. FLAXSEED OIL [Concomitant]
     Dosage: 1000 mg, UNK
  11. LIVER [Concomitant]
     Dosage: 500 mg, UNK
  12. HAWTHORN                           /01349301/ [Concomitant]
     Dosage: 500 mg, UNK
  13. FISH OIL [Concomitant]
  14. MULTIVITAMIN                       /00097801/ [Concomitant]
  15. CALCIUM + VITAMIN D [Concomitant]
  16. GLUCOSAMINE + CHONDROITIN          /01430901/ [Concomitant]

REACTIONS (3)
  - Haemorrhoids [Recovering/Resolving]
  - Rectal haemorrhage [Recovering/Resolving]
  - Rash pruritic [Not Recovered/Not Resolved]
